FAERS Safety Report 19756251 (Version 1)
Quarter: 2021Q3

REPORT INFORMATION
  Report Type: Report from Study
  Country: GB (occurrence: GB)
  Receive Date: 20210827
  Receipt Date: 20210827
  Transmission Date: 20211014
  Serious: Yes (Hospitalization)
  Sender: FDA-Public Use
  Company Number: GB-TEVA-2021-GB-1946829

PATIENT
  Sex: Female

DRUGS (1)
  1. OLATUTON [Suspect]
     Active Substance: OCTREOTIDE
     Route: 065

REACTIONS (2)
  - Pain [Recovered/Resolved]
  - Constipation [Recovered/Resolved]
